FAERS Safety Report 4345191-6 (Version None)
Quarter: 2004Q2

REPORT INFORMATION
  Report Type: 
  Country: None (occurrence: None)
  Receive Date: 20040420
  Receipt Date: 20040407
  Transmission Date: 20050107
  Serious: Yes (Death, Other)
  Sender: FDA-Public Use
  Company Number: 2003125252

PATIENT
  Age: 13 Year
  Sex: Female
  Weight: 30 kg

DRUGS (3)
  1. VFEND [Suspect]
     Indication: ANTIFUNGAL PROPHYLAXIS
     Dosage: (BID), ORAL
     Route: 048
     Dates: start: 20020924
  2. ANTIFUNGALS (ANTIFUNGALS) [Concomitant]
  3. CASPOFUNGIN (CASPOFUNGIN) [Concomitant]

REACTIONS (5)
  - HEPATIC LESION [None]
  - LUNG DISORDER [None]
  - NERVOUS SYSTEM DISORDER [None]
  - RENAL DISORDER [None]
  - ZYGOMYCOSIS [None]
